FAERS Safety Report 9454625 (Version 2)
Quarter: 2013Q3

REPORT INFORMATION
  Report Type: Spontaneous
  Country: JP (occurrence: JP)
  Receive Date: 20130812
  Receipt Date: 20130816
  Transmission Date: 20140515
  Serious: Yes (Death)
  Sender: FDA-Public Use
  Company Number: JP-ASTRAZENECA-2013SE61730

PATIENT
  Age: 24 Year
  Sex: Female

DRUGS (4)
  1. MARCAIN SPINAL [Suspect]
     Indication: SPINAL ANAESTHESIA
     Route: 029
  2. DIPRIVAN [Suspect]
     Indication: SEDATION
     Route: 042
  3. DROLEPTAN [Concomitant]
     Indication: SEDATION
     Route: 042
  4. LAUGHING GAS [Concomitant]
     Dosage: DOSE UNKNOWN
     Route: 055

REACTIONS (3)
  - Anaphylactoid syndrome of pregnancy [Fatal]
  - Tachycardia [Unknown]
  - Hypotension [Unknown]
